FAERS Safety Report 16443889 (Version 1)
Quarter: 2019Q2

REPORT INFORMATION
  Report Type: Spontaneous
  Country: US (occurrence: US)
  Receive Date: 20190618
  Receipt Date: 20190618
  Transmission Date: 20190711
  Serious: Yes (Hospitalization, Other)
  Sender: FDA-Public Use
  Company Number: US-AUROBINDO-AUR-APL-2019-034437

PATIENT

DRUGS (2)
  1. NALOXONE [Suspect]
     Active Substance: NALOXONE
     Indication: SOMNOLENCE
     Dosage: 2 MILLIGRAM
     Route: 042
  2. CLONIDINE TABLET 0.1 MG [Suspect]
     Active Substance: CLONIDINE
     Indication: PRODUCT USED FOR UNKNOWN INDICATION
     Dosage: UNK
     Route: 065

REACTIONS (9)
  - Somnolence [Unknown]
  - Ejection fraction decreased [Unknown]
  - Mental disorder [Unknown]
  - Hypertension [Unknown]
  - Bradycardia [Unknown]
  - Systolic dysfunction [Unknown]
  - Overdose [Unknown]
  - Hypotension [Unknown]
  - Pulmonary oedema [Unknown]
